FAERS Safety Report 9268502 (Version 2)
Quarter: 2013Q2

REPORT INFORMATION
  Report Type: Spontaneous
  Country: US (occurrence: US)
  Receive Date: 20130502
  Receipt Date: 20130607
  Transmission Date: 20140414
  Serious: Yes (Death, Hospitalization)
  Sender: FDA-Public Use
  Company Number: US-B.I. PHARMACEUTICALS,INC./RIDGEFIELD-2013-BI-12021BP

PATIENT
  Age: 85 Year
  Sex: Male
  Weight: 79.38 kg

DRUGS (8)
  1. PRADAXA [Suspect]
     Indication: ANTICOAGULANT THERAPY
     Dosage: 300 MG
     Route: 048
     Dates: start: 20110602, end: 20110724
  2. MULTIVITAMIN [Concomitant]
  3. CALCIUM [Concomitant]
     Dosage: 1200 MG
  4. FISH OIL [Concomitant]
     Dosage: 1200 MG
  5. METOPROLOL TARTRATE [Concomitant]
  6. TORSEMIDE [Concomitant]
     Dosage: 10 MG
  7. VITAMIN D [Concomitant]
     Dosage: 2000 U
  8. FLOMAX [Concomitant]
     Dosage: 0.4 MG

REACTIONS (6)
  - Acute respiratory failure [Fatal]
  - Aspiration [Fatal]
  - Cerebral haemorrhage [Unknown]
  - Gastrointestinal haemorrhage [Unknown]
  - Haemoptysis [Unknown]
  - Anaemia [Unknown]
